FAERS Safety Report 20056261 (Version 1)
Quarter: 2021Q4

REPORT INFORMATION
  Report Type: Report from Study
  Country: US (occurrence: None)
  Receive Date: 20211111
  Receipt Date: 20211111
  Transmission Date: 20220303
  Serious: Yes (Other)
  Sender: FDA-Public Use
  Company Number: US-ROCHE-2952004

PATIENT
  Age: 31 Year
  Sex: Female
  Weight: 111.4 kg

DRUGS (1)
  1. ATEZOLIZUMAB [Suspect]
     Active Substance: ATEZOLIZUMAB
     Indication: Alveolar soft part sarcoma
     Dosage: OVER 30-60 MINUTES ON DAY 1
     Route: 041

REACTIONS (2)
  - Respiratory disorder [Unknown]
  - Ventricular tachycardia [Unknown]
